FAERS Safety Report 9221079 (Version 2)
Quarter: 2013Q4

REPORT INFORMATION
  Report Type: Spontaneous
  Country: US (occurrence: US)
  Receive Date: 20130409
  Receipt Date: 20131219
  Transmission Date: 20140711
  Serious: Yes (Other)
  Sender: FDA-Public Use
  Company Number: US-PFIZER INC-2013108031

PATIENT
  Age: 69 Year
  Sex: Female
  Weight: 79.4 kg

DRUGS (1)
  1. AROMASIN [Suspect]
     Indication: BREAST CANCER STAGE III
     Dosage: 25 MG, 1X/DAY
     Route: 048
     Dates: start: 2009

REACTIONS (9)
  - Nephrolithiasis [Unknown]
  - Neoplasm [Unknown]
  - Urinary tract infection [Recovered/Resolved]
  - Seroma [Unknown]
  - Gastric polyps [Unknown]
  - White blood cell count abnormal [Unknown]
  - Adrenal disorder [Unknown]
  - Renal disorder [Unknown]
  - Flank pain [Unknown]
